FAERS Safety Report 15387554 (Version 1)
Quarter: 2018Q3

REPORT INFORMATION
  Report Type: Spontaneous
  Country: US (occurrence: US)
  Receive Date: 20180914
  Receipt Date: 20180914
  Transmission Date: 20181010
  Serious: No
  Sender: FDA-Public Use
  Company Number: US-PURDUE-USA-2018-0143699

PATIENT
  Sex: Male
  Weight: 81.63 kg

DRUGS (1)
  1. OXYCODONE/ ACETAMINOPHEN TABLETS [Suspect]
     Active Substance: ACETAMINOPHEN\OXYCODONE HYDROCHLORIDE
     Indication: BACK PAIN
     Dosage: 7.5/ 325 MG, QID
     Route: 048

REACTIONS (3)
  - Unevaluable event [Unknown]
  - Inadequate analgesia [Unknown]
  - Drug ineffective [Unknown]
